FAERS Safety Report 25281913 (Version 4)
Quarter: 2025Q3

REPORT INFORMATION
  Report Type: Spontaneous
  Country: US (occurrence: US)
  Receive Date: 20250508
  Receipt Date: 20250926
  Transmission Date: 20251021
  Serious: Yes (Other)
  Sender: CSL BEHRING
  Company Number: US-BEH-2025203568

PATIENT
  Sex: Female

DRUGS (7)
  1. HIZENTRA [Suspect]
     Active Substance: HUMAN IMMUNOGLOBULIN G
     Indication: Immunodeficiency
     Dosage: 1 G, QOW
     Route: 058
     Dates: start: 202502
  2. HIZENTRA [Suspect]
     Active Substance: HUMAN IMMUNOGLOBULIN G
     Indication: Stiff person syndrome
     Dosage: 4 G, QOW
     Route: 058
     Dates: start: 202502
  3. HIZENTRA [Suspect]
     Active Substance: HUMAN IMMUNOGLOBULIN G
     Dosage: 10 G, QOW
     Route: 058
     Dates: start: 202502
  4. EPINEPHRINE [Concomitant]
     Active Substance: EPINEPHRINE
  5. DUPIXENT [Concomitant]
     Active Substance: DUPILUMAB
  6. DUPIXENT [Concomitant]
     Active Substance: DUPILUMAB
  7. DUPIXENT [Concomitant]
     Active Substance: DUPILUMAB

REACTIONS (21)
  - Autoimmune disorder [Unknown]
  - Pneumonia [Unknown]
  - Fatigue [Unknown]
  - Sinusitis [Unknown]
  - Myalgia [Unknown]
  - Arthralgia [Unknown]
  - Bone lesion [Unknown]
  - Ear infection [Unknown]
  - Bronchitis [Unknown]
  - Fatigue [Unknown]
  - Stress [Unknown]
  - Back pain [Unknown]
  - Nausea [Unknown]
  - Muscle spasms [Unknown]
  - Photosensitivity reaction [Unknown]
  - Headache [Not Recovered/Not Resolved]
  - Photopsia [Unknown]
  - Increased dose administered [Unknown]
  - Device breakage [Unknown]
  - Wrong technique in product usage process [Unknown]
  - Off label use [Unknown]

NARRATIVE: CASE EVENT DATE: 20250101
